FAERS Safety Report 4263772-5 (Version None)
Quarter: 2004Q1

REPORT INFORMATION
  Report Type: 
  Country: None (occurrence: None)
  Receive Date: 20040102
  Receipt Date: 20031223
  Transmission Date: 20041129
  Serious: Yes (Other)
  Sender: FDA-Public Use
  Company Number: USA030843174

PATIENT
  Age: 23 Year
  Sex: Female

DRUGS (2)
  1. HUMULIN-HUMAN INSULIN (RDNA) UNKNOWN FORMULATION (HU [Suspect]
     Indication: DIABETES MELLITUS
     Dates: start: 19961214, end: 19971201
  2. LENTE ILETIN II (PORK) [Suspect]
     Indication: DIABETES MELLITUS
     Dates: start: 19770101

REACTIONS (2)
  - BLOOD GLUCOSE INCREASED [None]
  - EYE HAEMORRHAGE [None]
